FAERS Safety Report 18753997 (Version 1)
Quarter: 2021Q1

REPORT INFORMATION
  Report Type: Spontaneous
  Country: CN (occurrence: CN)
  Receive Date: 20210119
  Receipt Date: 20210119
  Transmission Date: 20210419
  Serious: Yes (Hospitalization, Other)
  Sender: FDA-Public Use
  Company Number: CN-ALKEM LABORATORIES LIMITED-CN-ALKEM-2021-00031

PATIENT
  Age: 37 Year
  Sex: Male

DRUGS (2)
  1. METHYLPREDNISOLONE. [Suspect]
     Active Substance: METHYLPREDNISOLONE
     Indication: IMMUNOSUPPRESSANT DRUG THERAPY
     Dosage: 8 MILLIGRAM, QD
     Route: 048
     Dates: start: 201703, end: 201903
  2. MYCOPHENOLATE MOFETIL. [Suspect]
     Active Substance: MYCOPHENOLATE MOFETIL
     Indication: IMMUNOSUPPRESSANT DRUG THERAPY
     Dosage: 180 MILLIGRAM, BID
     Route: 048
     Dates: start: 201703, end: 201903

REACTIONS (6)
  - Loss of consciousness [Recovered/Resolved]
  - Carotid artery occlusion [Recovered/Resolved]
  - Cerebral infarction [Recovered/Resolved]
  - Hemiparesis [Recovered/Resolved]
  - Aspergillus infection [Recovered/Resolved]
  - Seizure [Recovered/Resolved]

NARRATIVE: CASE EVENT DATE: 201902
